FAERS Safety Report 7460054-5 (Version None)
Quarter: 2011Q2

REPORT INFORMATION
  Report Type: 
  Country: None (occurrence: None)
  Receive Date: 20110505
  Receipt Date: 20110421
  Transmission Date: 20111010
  Serious: Yes (Other)
  Sender: FDA-Public Use
  Company Number: PHHY2011JP16107

PATIENT
  Sex: Male
  Weight: 70 kg

DRUGS (12)
  1. EXJADE [Suspect]
     Indication: ACUTE MYELOID LEUKAEMIA
     Dosage: 500 MG, DAILY
     Route: 048
     Dates: start: 20100208, end: 20100303
  2. MIYA-BM [Concomitant]
     Dosage: 3 G, UNK
     Route: 048
     Dates: start: 20100208, end: 20100310
  3. BAKTAR [Concomitant]
     Dosage: 1 DF, UNK
     Route: 048
     Dates: start: 20100208, end: 20100310
  4. MUCOSTA [Concomitant]
     Dosage: 300 MG, UNK
     Route: 048
     Dates: start: 20100208
  5. TAKEPRON [Concomitant]
     Dosage: 15 MG, UNK
     Dates: start: 20100208, end: 20100310
  6. EXJADE [Suspect]
     Dosage: 500 MG, DAILY
     Route: 048
     Dates: start: 20100624, end: 20100707
  7. NEORAL [Concomitant]
     Dosage: 50 MG, UNK
     Route: 048
  8. URSO 250 [Concomitant]
     Dosage: 300 MG, UNK
     Route: 048
     Dates: start: 20100208, end: 20100315
  9. RED BLOOD CELLS, CONCENTRATED [Concomitant]
     Dosage: DOSE OF 2 UNITS AROUND 25 TIMES
     Dates: end: 20100208
  10. NEORAL [Concomitant]
     Dosage: 150 MG, UNK
     Route: 048
  11. NEORAL [Concomitant]
     Dosage: 25 MG, UNK
     Route: 048
  12. NEORAL [Concomitant]
     Dosage: 250 MG, UNK
     Route: 048
     Dates: start: 20100416

REACTIONS (3)
  - PANCYTOPENIA [None]
  - GRAFT VERSUS HOST DISEASE [None]
  - NEOPLASM MALIGNANT [None]
